FAERS Safety Report 4614298-8 (Version None)
Quarter: 2005Q1

REPORT INFORMATION
  Report Type: 
  Country: None (occurrence: None)
  Receive Date: 20050307
  Receipt Date: 20050218
  Transmission Date: 20050727
  Serious: Yes (Hospitalization)
  Sender: FDA-Public Use
  Company Number: 2005UW02855

PATIENT
  Age: 75 Year
  Sex: Male
  Weight: 98.8842 kg

DRUGS (3)
  1. CRESTOR [Suspect]
     Indication: HYPERCHOLESTEROLAEMIA
     Dosage: 10 MG QD PO
     Route: 048
     Dates: start: 20040101, end: 20040505
  2. ATENOLOL [Concomitant]
  3. PREDNISONE [Concomitant]

REACTIONS (1)
  - RHABDOMYOLYSIS [None]
